FAERS Safety Report 4835811-1 (Version None)
Quarter: 2005Q4

REPORT INFORMATION
  Report Type: 
  Country: None (occurrence: None)
  Receive Date: 20051118
  Receipt Date: 20051107
  Transmission Date: 20060501
  Serious: Yes (Other)
  Sender: FDA-Public Use
  Company Number: 2005153085

PATIENT
  Sex: Male

DRUGS (1)
  1. CELEBREX [Suspect]
     Indication: ROTATOR CUFF SYNDROME

REACTIONS (3)
  - ANGIOPLASTY [None]
  - ARTHROPATHY [None]
  - PAIN [None]
